FAERS Safety Report 6120265-8 (Version None)
Quarter: 2009Q1

REPORT INFORMATION
  Report Type: 
  Country: None (occurrence: None)
  Receive Date: 20090312
  Receipt Date: 20090225
  Transmission Date: 20090719
  Serious: Yes (Hospitalization)
  Sender: FDA-Public Use
  Company Number: 2009000616

PATIENT
  Age: 72 Year
  Sex: Female

DRUGS (1)
  1. ERLOTINIB                      (TABLET) [Suspect]
     Dosage: 1150 MG, QD, ORAL
     Route: 048
     Dates: start: 20081126, end: 20081207

REACTIONS (10)
  - CONJUNCTIVITIS [None]
  - DEHYDRATION [None]
  - FUNGAL INFECTION [None]
  - HYPOPHAGIA [None]
  - IMPETIGO [None]
  - MUCOSAL INFLAMMATION [None]
  - RASH [None]
  - SKIN EXFOLIATION [None]
  - STAPHYLOCOCCAL INFECTION [None]
  - VULVOVAGINAL DISCOMFORT [None]
